FAERS Safety Report 7875561-0 (Version None)
Quarter: 2011Q4

REPORT INFORMATION
  Report Type: 
  Country: None (occurrence: None)
  Receive Date: 20111031
  Receipt Date: 20111026
  Transmission Date: 20120403
  Serious: Yes (Life-Threatening)
  Sender: FDA-Public Use
  Company Number: PHFR2011GB06210

PATIENT
  Age: 61 Year
  Sex: Male
  Weight: 85.5 kg

DRUGS (9)
  1. CLOZAPINE [Suspect]
     Indication: SCHIZOPHRENIA
     Dosage: 325 MG/DAY
     Route: 048
     Dates: start: 20101029, end: 20110927
  2. DEKRISTOL [Concomitant]
     Dosage: 2 DF, QMO
  3. TAMSULOSIN HCL [Concomitant]
     Dosage: 400 UG, QD
  4. AMISULPRIDE [Concomitant]
     Dosage: 50 MG, BID
  5. FERROUS SULFATE TAB [Concomitant]
     Dosage: 200 MG, TID
  6. ESCITALOPRAM [Concomitant]
     Dosage: 10 MG, QD
  7. OMEPRAZOLE [Concomitant]
     Dosage: 10 MG, BID
  8. SIMVASTATIN [Concomitant]
     Dosage: 40 MG, QD
  9. MOVIPREP [Concomitant]
     Dosage: 1 DF, BID

REACTIONS (3)
  - NEUTROPENIA [None]
  - ELECTROCARDIOGRAM QT PROLONGED [None]
  - NEUROLEPTIC MALIGNANT SYNDROME [None]
